FAERS Safety Report 14893798 (Version 1)
Quarter: 2018Q2

REPORT INFORMATION
  Report Type: Other
  Country: CN (occurrence: CN)
  Receive Date: 20180514
  Receipt Date: 20180514
  Transmission Date: 20180711
  Serious: Yes (Other)
  Sender: FDA-Public Use
  Company Number: CN-GE HEALTHCARE LIFE SCIENCES-2018CSU001823

PATIENT

DRUGS (3)
  1. SODIUM CHLORIDE. [Suspect]
     Active Substance: SODIUM CHLORIDE
     Indication: PRODUCT USED FOR UNKNOWN INDICATION
     Dosage: 70 ML, UNK
     Dates: start: 20171213, end: 20171213
  2. OMNIPAQUE [Suspect]
     Active Substance: IOHEXOL
     Dosage: UNK
  3. OMNIPAQUE [Suspect]
     Active Substance: IOHEXOL
     Indication: PRODUCT USED FOR UNKNOWN INDICATION
     Dosage: 83 ML, SINGLE
     Route: 042
     Dates: start: 20171213, end: 20171213

REACTIONS (3)
  - Blood pressure increased [Recovering/Resolving]
  - Seizure [Recovering/Resolving]
  - Infusion related reaction [Recovering/Resolving]

NARRATIVE: CASE EVENT DATE: 20171213
